FAERS Safety Report 6883778-7 (Version None)
Quarter: 2010Q3

REPORT INFORMATION
  Report Type: 
  Country: None (occurrence: None)
  Receive Date: 20100729
  Receipt Date: 20100723
  Transmission Date: 20110219
  Serious: Yes (Other)
  Sender: FDA-Public Use
  Company Number: US-BRISTOL-MYERS SQUIBB COMPANY-15209356

PATIENT
  Sex: Female

DRUGS (1)
  1. ERBITUX [Suspect]
     Dosage: LAST DOSE:6 MONTHS AGO

REACTIONS (1)
  - SMEAR CERVIX ABNORMAL [None]
